FAERS Safety Report 13719129 (Version 1)
Quarter: 2017Q3

REPORT INFORMATION
  Report Type: Spontaneous
  Country: CN (occurrence: CN)
  Receive Date: 20170705
  Receipt Date: 20170705
  Transmission Date: 20171127
  Serious: Yes (Death)
  Sender: FDA-Public Use
  Company Number: CN-PFIZER INC-2017287813

PATIENT
  Age: 50 Year
  Sex: Male

DRUGS (5)
  1. PEGASPARGASE [Concomitant]
     Active Substance: PEGASPARGASE
     Indication: NON-HODGKIN^S LYMPHOMA STAGE III
  2. METHOTREXATE SODIUM. [Suspect]
     Active Substance: METHOTREXATE SODIUM
     Indication: NON-HODGKIN^S LYMPHOMA STAGE III
     Dosage: THREE CYCLIC (UP TO 7.6 G)
     Route: 042
  3. GEMCITABINE [Concomitant]
     Active Substance: GEMCITABINE\GEMCITABINE HYDROCHLORIDE
     Indication: NON-HODGKIN^S LYMPHOMA STAGE III
     Dosage: UNK (THIRD COURSE)
  4. CISPLATIN. [Concomitant]
     Active Substance: CISPLATIN
     Indication: NON-HODGKIN^S LYMPHOMA STAGE III
     Dosage: UNK (THIRD COURSE)
  5. DEXAMETHASONE. [Concomitant]
     Active Substance: DEXAMETHASONE
     Indication: NON-HODGKIN^S LYMPHOMA STAGE III
     Dosage: UNK

REACTIONS (1)
  - Neurotoxicity [Fatal]
